FAERS Safety Report 4893539-6 (Version None)
Quarter: 2006Q1

REPORT INFORMATION
  Report Type: 
  Country: None (occurrence: None)
  Receive Date: 20060127
  Receipt Date: 20051005
  Transmission Date: 20060701
  Serious: Yes (Other)
  Sender: FDA-Public Use
  Company Number: 2005UW14972

PATIENT
  Age: 670 Month
  Sex: Female
  Weight: 73.5 kg

DRUGS (8)
  1. NEXIUM [Suspect]
     Indication: GASTROOESOPHAGEAL REFLUX DISEASE
     Route: 048
     Dates: start: 20030601, end: 20051001
  2. ZYRTEC [Concomitant]
  3. PRINIVIL [Concomitant]
  4. ADVAIR DISKUS 100/50 [Concomitant]
  5. FLONASE [Concomitant]
  6. TYLENOL (CAPLET) [Concomitant]
  7. ADVIL [Concomitant]
  8. PREVACID [Concomitant]
     Indication: GASTROOESOPHAGEAL REFLUX DISEASE
     Route: 048
     Dates: start: 20030501, end: 20030601

REACTIONS (4)
  - BLOOD CHOLESTEROL INCREASED [None]
  - BLOOD TRIGLYCERIDES INCREASED [None]
  - HIGH DENSITY LIPOPROTEIN DECREASED [None]
  - LOW DENSITY LIPOPROTEIN INCREASED [None]
